FAERS Safety Report 7699523-1 (Version None)
Quarter: 2011Q3

REPORT INFORMATION
  Report Type: 
  Country: None (occurrence: None)
  Receive Date: 20110820
  Receipt Date: 20110729
  Transmission Date: 20111222
  Serious: No
  Sender: FDA-Public Use
  Company Number: US-ALLERGAN-1110273US

PATIENT
  Sex: Female

DRUGS (1)
  1. SANCTURA XR [Suspect]
     Indication: HYPERTONIC BLADDER
     Dosage: UNK
     Dates: start: 20110519

REACTIONS (8)
  - VISUAL ACUITY REDUCED [None]
  - HEART RATE INCREASED [None]
  - PALPITATIONS [None]
  - HEART VALVE INCOMPETENCE [None]
  - VISUAL IMPAIRMENT [None]
  - PALLOR [None]
  - HYPERTENSION [None]
  - INSOMNIA [None]
